FAERS Safety Report 7448799-4 (Version None)
Quarter: 2011Q2

REPORT INFORMATION
  Report Type: 
  Country: None (occurrence: None)
  Receive Date: 20110429
  Receipt Date: 20100809
  Transmission Date: 20111010
  Serious: No
  Sender: FDA-Public Use
  Company Number: US-ASTRAZENECA-2010SE37243

PATIENT
  Sex: Male

DRUGS (2)
  1. OMEPRAZOLE [Suspect]
     Route: 048
  2. NEXIUM [Suspect]
     Route: 048

REACTIONS (5)
  - BLOOD POTASSIUM INCREASED [None]
  - PHARYNGEAL MASS [None]
  - BLOOD IRON DECREASED [None]
  - THERAPY REGIMEN CHANGED [None]
  - GASTROOESOPHAGEAL REFLUX DISEASE [None]
